FAERS Safety Report 11516497 (Version 1)
Quarter: 2015Q3

REPORT INFORMATION
  Report Type: Spontaneous
  Country: US (occurrence: US)
  Receive Date: 20150917
  Receipt Date: 20150917
  Transmission Date: 20151125
  Serious: Yes (Other)
  Sender: FDA-Public Use
  Company Number: US-TEVA-593932ACC

PATIENT
  Age: 39 Year
  Sex: Female
  Weight: 83.99 kg

DRUGS (2)
  1. ASPIRIN. [Concomitant]
     Active Substance: ASPIRIN
  2. PARAGARD T 380A [Suspect]
     Active Substance: COPPER
     Indication: CONTRACEPTION
     Route: 015
     Dates: start: 20150106, end: 20150826

REACTIONS (5)
  - Vaginal haemorrhage [Unknown]
  - Dyspareunia [Recovered/Resolved]
  - Device dislocation [Recovered/Resolved]
  - Muscle spasms [Unknown]
  - Pelvic pain [Unknown]

NARRATIVE: CASE EVENT DATE: 20150824
